FAERS Safety Report 12212468 (Version 1)
Quarter: 2016Q1

REPORT INFORMATION
  Report Type: Spontaneous
  Country: US (occurrence: US)
  Receive Date: 20160326
  Receipt Date: 20160326
  Transmission Date: 20160526
  Serious: No
  Sender: FDA-Public Use
  Company Number: PHEH2016US007145

PATIENT
  Age: 64 Year
  Sex: Female

DRUGS (2)
  1. MEKINIST [Suspect]
     Active Substance: TRAMETINIB DIMETHYL SULFOXIDE
     Indication: SKIN CANCER
     Dosage: 2 MG, QD
     Route: 048
     Dates: start: 20160218, end: 20160318
  2. TAFINLAR [Suspect]
     Active Substance: DABRAFENIB MESYLATE
     Indication: SKIN CANCER
     Dosage: 150 MG, BID
     Route: 048
     Dates: start: 20160218, end: 20160318

REACTIONS (4)
  - Peripheral swelling [Unknown]
  - Pyrexia [Unknown]
  - Chills [Unknown]
  - Rash [Unknown]

NARRATIVE: CASE EVENT DATE: 20160301
